FAERS Safety Report 5663775-X (Version None)
Quarter: 2008Q1

REPORT INFORMATION
  Report Type: 
  Country: None (occurrence: None)
  Receive Date: 20080311
  Receipt Date: 20080225
  Transmission Date: 20080703
  Serious: Yes (Death, Hospitalization)
  Sender: FDA-Public Use
  Company Number: 2007US000010

PATIENT
  Age: 73 Year
  Sex: Female
  Weight: 93 kg

DRUGS (18)
  1. AMEVIVE [Suspect]
     Indication: PSORIASIS
     Dosage: 15 MG, WEEKLY, INTRAMUSCULAR
     Route: 030
     Dates: start: 20030910
  2. METHYLPREDNISOLONE [Concomitant]
  3. REGLAN [Concomitant]
  4. TRIAMCINOLON E (CHLOROXINE) [Concomitant]
  5. VANCOMYCIN HYDROCHLORIDE [Concomitant]
  6. VERAPAMIL [Concomitant]
  7. INSULIN (INSULIN HUMAN) [Concomitant]
  8. LIPITOR [Concomitant]
  9. WELLBUTRIN [Concomitant]
  10. DUONEB [Concomitant]
  11. PLAVIX [Concomitant]
  12. LIDOCAIN [Concomitant]
  13. MAGNESIUM [Concomitant]
  14. CLONIDINE [Concomitant]
  15. VICODIN [Concomitant]
  16. ATIVAN [Concomitant]
  17. MORPHINE [Concomitant]
  18. ZOFRAN [Concomitant]

REACTIONS (26)
  - ABDOMINAL PAIN UPPER [None]
  - ACUTE RESPIRATORY FAILURE [None]
  - ALTERED STATE OF CONSCIOUSNESS [None]
  - ANAEMIA [None]
  - BACK PAIN [None]
  - BLOOD GLUCOSE INCREASED [None]
  - CARBON DIOXIDE INCREASED [None]
  - CARDIO-RESPIRATORY ARREST [None]
  - CHRONIC OBSTRUCTIVE PULMONARY DISEASE [None]
  - CONDITION AGGRAVATED [None]
  - CONVULSION [None]
  - DYSPHAGIA [None]
  - ENTEROCOCCAL INFECTION [None]
  - FALL [None]
  - GENERAL PHYSICAL HEALTH DETERIORATION [None]
  - HAEMATURIA [None]
  - HYPERTENSION [None]
  - HYPOXIA [None]
  - KLEBSIELLA INFECTION [None]
  - LEFT VENTRICULAR HYPERTROPHY [None]
  - MOBILITY DECREASED [None]
  - PNEUMONIA [None]
  - RESPIRATORY DEPRESSION [None]
  - SKIN HAEMORRHAGE [None]
  - STAPHYLOCOCCAL SEPSIS [None]
  - URINARY TRACT INFECTION FUNGAL [None]
